FAERS Safety Report 12990072 (Version 1)
Quarter: 2016Q4

REPORT INFORMATION
  Report Type: Spontaneous
  Country: US (occurrence: US)
  Receive Date: 20161130
  Receipt Date: 20161130
  Transmission Date: 20170207
  Serious: No
  Sender: FDA-Public Use
  Company Number: None

PATIENT
  Age: 58 Year
  Sex: Male

DRUGS (2)
  1. SOVALDI [Suspect]
     Active Substance: SOFOSBUVIR
     Indication: CHRONIC HEPATITIS C
  2. DAKLINZA [Suspect]
     Active Substance: DACLATASVIR

REACTIONS (3)
  - Swollen tongue [None]
  - Skin burning sensation [None]
  - Emotional disorder [None]

NARRATIVE: CASE EVENT DATE: 20161130
